FAERS Safety Report 25775435 (Version 2)
Quarter: 2025Q3

REPORT INFORMATION
  Report Type: Report from Study
  Country: US (occurrence: US)
  Receive Date: 20250909
  Receipt Date: 20250917
  Transmission Date: 20251021
  Serious: Yes (Other)
  Sender: ABBVIE
  Company Number: US-ABBVIE-6318842

PATIENT
  Age: 83 Year
  Sex: Female
  Weight: 70 kg

DRUGS (2)
  1. HUMIRA [Suspect]
     Active Substance: ADALIMUMAB
     Indication: Rheumatoid arthritis
     Route: 058
     Dates: start: 20200101
  2. HUMIRA [Suspect]
     Active Substance: ADALIMUMAB
     Route: 058
     Dates: start: 2019

REACTIONS (8)
  - Shoulder arthroplasty [Unknown]
  - Tooth abscess [Not Recovered/Not Resolved]
  - Administration site pain [Recovering/Resolving]
  - Knee arthroplasty [Recovered/Resolved]
  - Urinary tract infection [Not Recovered/Not Resolved]
  - General physical health deterioration [Unknown]
  - Osteoporosis [Unknown]
  - Parathyroidectomy [Unknown]

NARRATIVE: CASE EVENT DATE: 20250802
